FAERS Safety Report 5063969-0 (Version None)
Quarter: 2006Q3

REPORT INFORMATION
  Report Type: 
  Country: None (occurrence: None)
  Receive Date: 20060703
  Receipt Date: 20051017
  Transmission Date: 20061208
  Serious: No
  Sender: FDA-Public Use
  Company Number: 2005S1010197

PATIENT
  Age: 50 Year
  Sex: Male
  Weight: 127.4608 kg

DRUGS (16)
  1. CLOZAPINE [Suspect]
     Indication: PARANOIA
     Dosage: SEE IMAGE
     Route: 048
     Dates: start: 20030408, end: 20051013
  2. CLOZAPINE [Suspect]
     Indication: SCHIZOPHRENIA, RESIDUAL TYPE
     Dosage: SEE IMAGE
     Route: 048
     Dates: start: 20030408, end: 20051013
  3. CLOZAPINE [Suspect]
     Indication: PARANOIA
     Dosage: SEE IMAGE
     Route: 048
     Dates: start: 20051014
  4. CLOZAPINE [Suspect]
     Indication: SCHIZOPHRENIA, RESIDUAL TYPE
     Dosage: SEE IMAGE
     Route: 048
     Dates: start: 20051014
  5. SETRALINE HCL [Concomitant]
  6. TAMSULOSIN HYDROCHLORIDE [Concomitant]
  7. BENZTROPINE MESYLATE [Concomitant]
  8. HYDROCHLOROTHIAZIDE [Concomitant]
  9. SORBITOL [Concomitant]
  10. PSYLLIUM [Concomitant]
  11. TOCOPHEROL CONCENTRATE CAP [Concomitant]
  12. HYDROXYZINE EMBONATE [Concomitant]
  13. HALOPERIDOL [Concomitant]
  14. ALUMINIUM HYDROXIDE GEL/MAGNESIUM TRISILICATE [Concomitant]
  15. ACETAMINOPHEN [Concomitant]
  16. BENAZEPRIL HYDROCHLORIDE [Concomitant]

REACTIONS (2)
  - GRANULOCYTOPENIA [None]
  - LEUKOPENIA [None]
